FAERS Safety Report 13149587 (Version 1)
Quarter: 2017Q1

REPORT INFORMATION
  Report Type: Spontaneous
  Country: US (occurrence: US)
  Receive Date: 20170125
  Receipt Date: 20170125
  Transmission Date: 20170428
  Serious: Yes (Hospitalization)
  Sender: FDA-Public Use
  Company Number: US-ACADIA PHARMACEUTICALS INC.-ACA-2017-001957

PATIENT
  Age: 81 Year
  Sex: Female
  Weight: 36.28 kg

DRUGS (3)
  1. NUPLAZID [Suspect]
     Active Substance: PIMAVANSERIN TARTRATE
     Indication: PARKINSON^S DISEASE
     Dosage: 34 MG, QD
     Route: 048
     Dates: start: 20170107, end: 20170113
  2. NUPLAZID [Suspect]
     Active Substance: PIMAVANSERIN TARTRATE
     Indication: HALLUCINATION
  3. NUPLAZID [Suspect]
     Active Substance: PIMAVANSERIN TARTRATE
     Indication: DEMENTIA

REACTIONS (6)
  - Off label use [Unknown]
  - Vomiting [Unknown]
  - Kidney infection [Unknown]
  - Pneumonia [Unknown]
  - Fluid intake reduced [Unknown]
  - Decreased appetite [Unknown]

NARRATIVE: CASE EVENT DATE: 2017
